FAERS Safety Report 17715055 (Version 2)
Quarter: 2021Q2

REPORT INFORMATION
  Report Type: Spontaneous
  Country: US (occurrence: US)
  Receive Date: 20200427
  Receipt Date: 20210518
  Transmission Date: 20210716
  Serious: Yes (Other)
  Sender: FDA-Public Use
  Company Number: US-ASTRAZENECA-2020SE54709

PATIENT
  Age: 19477 Day
  Sex: Male

DRUGS (13)
  1. GLYBURIDE. [Concomitant]
     Active Substance: GLYBURIDE
  2. INDOMETHACIN. [Concomitant]
     Active Substance: INDOMETHACIN
  3. COZAAR [Concomitant]
     Active Substance: LOSARTAN POTASSIUM
  4. TOPROL XL [Concomitant]
     Active Substance: METOPROLOL SUCCINATE
  5. TRAMADOL. [Concomitant]
     Active Substance: TRAMADOL
  6. NEXIUM [Suspect]
     Active Substance: ESOMEPRAZOLE MAGNESIUM
     Route: 048
     Dates: start: 200801, end: 201306
  7. HYDRALAZINE [Concomitant]
     Active Substance: HYDRALAZINE HYDROCHLORIDE
  8. ALLOPURINOL. [Concomitant]
     Active Substance: ALLOPURINOL
  9. LISINOPRIL. [Concomitant]
     Active Substance: LISINOPRIL
  10. LABETALOL [Concomitant]
     Active Substance: LABETALOL\LABETALOL HYDROCHLORIDE
  11. CRESTOR [Concomitant]
     Active Substance: ROSUVASTATIN CALCIUM
  12. CLONIDINE. [Concomitant]
     Active Substance: CLONIDINE
  13. NORVASC [Concomitant]
     Active Substance: AMLODIPINE BESYLATE

REACTIONS (2)
  - Renal failure [Unknown]
  - Chronic kidney disease [Unknown]

NARRATIVE: CASE EVENT DATE: 20130508
